FAERS Safety Report 8535743 (Version 2)
Quarter: 2014Q1

REPORT INFORMATION
  Report Type: Report from Study
  Country: MX (occurrence: MX)
  Receive Date: 20120430
  Receipt Date: 20140121
  Transmission Date: 20141002
  Serious: Yes (Death)
  Sender: FDA-Public Use
  Company Number: PHHY2012MX035099

PATIENT
  Age: 88 Year
  Sex: Male

DRUGS (2)
  1. EXELON PATCH [Suspect]
     Indication: DEMENTIA ALZHEIMER^S TYPE
     Dosage: 4.6MG\24H (PATCH 5 CM2)
     Route: 062
     Dates: start: 201107
  2. EXELON PATCH [Suspect]
     Dosage: 0.5 DF, DAILY (1/2 PATCH)
     Route: 062
     Dates: end: 201112

REACTIONS (2)
  - Cardiac arrest [Fatal]
  - Wrong technique in drug usage process [Unknown]
